FAERS Safety Report 8546413 (Version 6)
Quarter: 2013Q2

REPORT INFORMATION
  Report Type: Report from Study
  Country: BE (occurrence: BE)
  Receive Date: 20120504
  Receipt Date: 20130422
  Transmission Date: 20140414
  Serious: Yes (Death, Hospitalization)
  Sender: FDA-Public Use
  Company Number: BE-BRISTOL-MYERS SQUIBB COMPANY-16556086

PATIENT
  Age: 54 Year
  Sex: Female
  Weight: 45 kg

DRUGS (21)
  1. CETUXIMAB [Suspect]
     Indication: NON-SMALL CELL LUNG CANCER
     Dosage: PRODUCT STRENGTH IS 5MG/ML
     Route: 042
     Dates: start: 20120410, end: 20120417
  2. CISPLATIN FOR INJ [Suspect]
     Indication: NON-SMALL CELL LUNG CANCER
     Route: 042
     Dates: start: 20120410, end: 20120410
  3. CILENGITIDE [Suspect]
     Indication: NON-SMALL CELL LUNG CANCER
     Route: 042
     Dates: start: 20120410, end: 20120417
  4. GEMCITABINE [Suspect]
     Indication: NON-SMALL CELL LUNG CANCER
     Dosage: ON DY1 AND DY 8 OF EACH 3WEEK CYCLE
     Route: 042
     Dates: start: 20120410, end: 20120417
  5. SYSTEN [Concomitant]
     Indication: PROPHYLAXIS
     Route: 062
  6. NYSTATIN [Concomitant]
     Indication: PROPHYLAXIS
     Route: 048
  7. DUROGESIC [Concomitant]
     Indication: NON-SMALL CELL LUNG CANCER
     Route: 062
     Dates: start: 201203
  8. DAFALGAN [Concomitant]
     Indication: NON-SMALL CELL LUNG CANCER
     Dosage: STOPPED:17APR12?RESTARTED:17APR12-ONG 1 MONTH
     Route: 048
     Dates: start: 201203
  9. OMEPRAZOLE [Concomitant]
     Indication: PROPHYLAXIS
     Route: 048
     Dates: start: 201203
  10. DEXAMETHASONE [Concomitant]
     Indication: NON-SMALL CELL LUNG CANCER
     Dosage: MAR2012-08APR12 4 MG 1MON?11APR12-13APR12 8 MG 2D
     Route: 048
     Dates: start: 201203
  11. DEXAMETHASONE [Concomitant]
     Indication: PROPHYLAXIS
     Dosage: MAR2012-08APR12 4 MG 1MON?11APR12-13APR12 8 MG 2D
     Route: 048
     Dates: start: 201203
  12. CACIT [Concomitant]
     Indication: PROPHYLAXIS
     Route: 048
     Dates: start: 201203
  13. MEDROL [Concomitant]
     Indication: NON-SMALL CELL LUNG CANCER
     Dosage: 16APR12?16APR12-23APR12  8 MG 7D?23APR12-24 APR12 4 MG 1D
     Route: 048
     Dates: start: 20120409
  14. EMEND [Concomitant]
     Indication: PROPHYLAXIS
     Dosage: 10APR12?11APR12-12APR12 1D
     Route: 048
     Dates: start: 20120410
  15. TEMESTA [Concomitant]
     Indication: PROPHYLAXIS
     Dosage: ONCE
     Route: 048
     Dates: start: 20120410, end: 20120410
  16. ZOFRAN [Concomitant]
     Indication: PROPHYLAXIS
     Dosage: ONCE
     Route: 042
     Dates: start: 20120410, end: 20120410
  17. ZOMETA [Concomitant]
     Indication: NON-SMALL CELL LUNG CANCER
     Dosage: ONCE
     Route: 042
     Dates: start: 20120411, end: 20120411
  18. METOCLOPRAMIDE [Concomitant]
     Route: 048
     Dates: start: 20120412
  19. MOVICOL [Concomitant]
     Route: 048
     Dates: start: 20120416
  20. LITICAN [Concomitant]
     Indication: PROPHYLAXIS
     Route: 042
     Dates: start: 20120417, end: 20120417
  21. OXINORM [Concomitant]
     Route: 048
     Dates: start: 20120420, end: 20120424

REACTIONS (1)
  - Multi-organ failure [Fatal]
